FAERS Safety Report 16912372 (Version 1)
Quarter: 2019Q4

REPORT INFORMATION
  Report Type: Spontaneous
  Country: FR (occurrence: FR)
  Receive Date: 20191014
  Receipt Date: 20191014
  Transmission Date: 20200122
  Serious: Yes (Death)
  Sender: FDA-Public Use
  Company Number: FR-ROCHE-2432625

PATIENT
  Age: 54 Year
  Sex: Female

DRUGS (4)
  1. VALIUM [Suspect]
     Active Substance: DIAZEPAM
     Indication: INTENTIONAL OVERDOSE
     Route: 048
     Dates: start: 20180611, end: 20180611
  2. STILNOX [Suspect]
     Active Substance: ZOLPIDEM TARTRATE
     Indication: INTENTIONAL OVERDOSE
     Route: 048
     Dates: start: 20180611, end: 20180611
  3. ACTISKENAN [Suspect]
     Active Substance: MORPHINE SULFATE
     Indication: INTENTIONAL OVERDOSE
     Route: 048
     Dates: start: 20180611, end: 20180611
  4. INSULIN [Suspect]
     Active Substance: INSULIN NOS
     Indication: INTENTIONAL OVERDOSE
     Route: 058
     Dates: start: 20180611, end: 20180611

REACTIONS (3)
  - Hypoglycaemia [Fatal]
  - Asphyxia [Fatal]
  - Poisoning deliberate [Fatal]

NARRATIVE: CASE EVENT DATE: 20180611
